FAERS Safety Report 14669312 (Version 2)
Quarter: 2018Q1

REPORT INFORMATION
  Report Type: Spontaneous
  Country: US (occurrence: US)
  Receive Date: 20180322
  Receipt Date: 20180326
  Transmission Date: 20180509
  Serious: Yes (Other)
  Sender: FDA-Public Use
  Company Number: US-PFIZER INC-2018116483

PATIENT
  Age: 65 Year
  Sex: Female

DRUGS (2)
  1. EFFEXOR XR [Suspect]
     Active Substance: VENLAFAXINE HYDROCHLORIDE
     Dosage: 75 MG, DAILY
     Dates: start: 2000
  2. EFFEXOR XR [Suspect]
     Active Substance: VENLAFAXINE HYDROCHLORIDE
     Dosage: 37.5 MG, DAILY

REACTIONS (9)
  - Libido decreased [Unknown]
  - Weight abnormal [Unknown]
  - Fear of death [Unknown]
  - Asthenia [Unknown]
  - Balance disorder [Unknown]
  - Disorientation [Unknown]
  - Drug dependence [Unknown]
  - Dizziness [Unknown]
  - Disturbance in attention [Unknown]
